FAERS Safety Report 7970593-6 (Version None)
Quarter: 2011Q4

REPORT INFORMATION
  Report Type: 
  Country: None (occurrence: None)
  Receive Date: 20111212
  Receipt Date: 20111201
  Transmission Date: 20120403
  Serious: Yes (Hospitalization)
  Sender: FDA-Public Use
  Company Number: PL-JNJFOC-20111012771

PATIENT
  Age: 23 Year
  Sex: Female

DRUGS (4)
  1. ACETAMINOPHEN [Suspect]
     Route: 065
  2. MACROLIDE [Suspect]
     Indication: INFLUENZA LIKE ILLNESS
     Route: 065
  3. ACETAMINOPHEN [Suspect]
     Indication: INFLUENZA LIKE ILLNESS
     Route: 065
  4. IBUPROFEN [Suspect]
     Indication: INFLUENZA LIKE ILLNESS
     Route: 065

REACTIONS (4)
  - MULTI-ORGAN FAILURE [None]
  - TRANSFUSION-RELATED ACUTE LUNG INJURY [None]
  - DERMATITIS EXFOLIATIVE [None]
  - PNEUMONIA [None]
